FAERS Safety Report 9205851 (Version 2)
Quarter: 2013Q2

REPORT INFORMATION
  Report Type: Spontaneous
  Country: US (occurrence: None)
  Receive Date: 20130401
  Receipt Date: 20130429
  Transmission Date: 20140414
  Serious: Yes (Hospitalization, Other)
  Sender: FDA-Public Use
  Company Number: ADR-2013-00535

PATIENT
  Age: 68 Year
  Sex: Female

DRUGS (2)
  1. LIORESAL [Suspect]
     Indication: MUSCLE SPASTICITY
     Dosage: 150 MCG/DAY
  2. ORAL BACLOFEN [Concomitant]

REACTIONS (9)
  - Muscle spasticity [None]
  - Mental status changes [None]
  - Confusional state [None]
  - Drug withdrawal syndrome [None]
  - Urinary tract infection [None]
  - Device leakage [None]
  - Electrolyte imbalance [None]
  - Cerebrovascular accident [None]
  - Anaesthetic complication [None]
